FAERS Safety Report 6412126-1 (Version None)
Quarter: 2009Q4

REPORT INFORMATION
  Report Type: 
  Country: None (occurrence: None)
  Receive Date: 20091023
  Receipt Date: 20091014
  Transmission Date: 20100525
  Serious: Yes (Death, Hospitalization)
  Sender: FDA-Public Use
  Company Number: JP-NOVOPROD-291314

PATIENT
  Age: 62 Year
  Sex: Male
  Weight: 61 kg

DRUGS (12)
  1. NOVORAPID CHU FLEXPEN [Suspect]
     Indication: TYPE 2 DIABETES MELLITUS
     Dosage: 76 IU, QD
     Route: 058
     Dates: start: 20080307
  2. NOVORAPID CHU FLEXPEN [Suspect]
     Dosage: 38 (14+16+8)UNK, TID
     Dates: start: 20080422
  3. LEVEMIR CHU PENFILL [Suspect]
     Indication: TYPE 2 DIABETES MELLITUS
     Dosage: 24 IU, QD
     Route: 058
     Dates: start: 20080307, end: 20080314
  4. NOVOLIN N [Suspect]
     Indication: TYPE 2 DIABETES MELLITUS
     Dosage: 10 IU, QD
     Route: 058
     Dates: start: 20080314
  5. HUMACART N [Suspect]
     Indication: TYPE 2 DIABETES MELLITUS
     Dosage: 40 IU, QD
     Route: 058
     Dates: end: 20080301
  6. HUMALOG [Suspect]
     Indication: TYPE 2 DIABETES MELLITUS
     Dosage: 78 IU, QD
     Route: 058
     Dates: end: 20080306
  7. CRAVIT [Concomitant]
     Dosage: 300 MG, QD
     Route: 048
     Dates: start: 20080227, end: 20080325
  8. TOFRANIL [Concomitant]
     Dosage: 80 MG, QD
     Route: 048
     Dates: start: 20080227
  9. LIVACT                             /00847901/ [Concomitant]
     Dosage: 8.45 MG, QD
     Route: 048
     Dates: start: 20080227
  10. BLADDERON [Concomitant]
     Dosage: 200 MG, QD
     Route: 048
     Dates: start: 20080227
  11. ALDACTONE [Concomitant]
     Dosage: 25 MG, QD
     Route: 048
     Dates: start: 20080227
  12. LASIX [Concomitant]
     Dosage: 20 MG, QD
     Route: 048
     Dates: start: 20080227

REACTIONS (4)
  - ANTI-INSULIN ANTIBODY INCREASED [None]
  - BLOOD GLUCOSE INCREASED [None]
  - BLOOD INSULIN INCREASED [None]
  - HYPOGLYCAEMIA [None]
